FAERS Safety Report 14410846 (Version 2)
Quarter: 2018Q1

REPORT INFORMATION
  Report Type: Spontaneous
  Country: JP (occurrence: JP)
  Receive Date: 20180119
  Receipt Date: 20180214
  Transmission Date: 20180509
  Serious: Yes (Death, Other)
  Sender: FDA-Public Use
  Company Number: JP-009507513-1801JPN001688J

PATIENT
  Age: 10 Decade
  Sex: Male

DRUGS (2)
  1. ERELSA TABLETS 50MG [Suspect]
     Active Substance: ELBASVIR
     Indication: VIRAEMIA
     Dosage: 50 MG, QD
     Route: 048
     Dates: start: 201712, end: 201712
  2. GRAZYNA TABLETS 50MG [Suspect]
     Active Substance: GRAZOPREVIR
     Indication: VIRAEMIA
     Dosage: 100 MG, QD
     Route: 048
     Dates: start: 201712, end: 201712

REACTIONS (2)
  - Pneumonia [Fatal]
  - Infection [Fatal]

NARRATIVE: CASE EVENT DATE: 201712
